FAERS Safety Report 8581290 (Version 3)
Quarter: 2013Q2

REPORT INFORMATION
  Report Type: Report from Study
  Country: US (occurrence: US)
  Receive Date: 20120525
  Receipt Date: 20130517
  Transmission Date: 20140414
  Serious: Yes (Hospitalization)
  Sender: FDA-Public Use
  Company Number: US-PFIZER INC-2012121757

PATIENT
  Age: 56 Year
  Sex: Female
  Weight: 85.7 kg

DRUGS (8)
  1. DOXORUBICIN HCL [Suspect]
     Indication: BREAST CANCER
     Dosage: 60 MG/M2, DAY 1OF C# 5-8
     Route: 042
     Dates: start: 20120327, end: 20120508
  2. CYCLOPHOSPHAMIDE [Suspect]
     Indication: BREAST CANCER
     Dosage: 600 MG/M2, DAY 1 OF C 5-8
     Route: 042
     Dates: start: 20120327, end: 20120508
  3. NERATINIB [Suspect]
     Indication: BREAST CANCER
     Dosage: 240 MG, DAILY
     Route: 048
     Dates: start: 20111212, end: 20120326
  4. PACLITAXEL [Suspect]
     Indication: BREAST CANCER
     Dosage: 80 MG/M2, CYCLIC, DAY 1,8,15 OF C#1-4
     Route: 042
     Dates: start: 20111212, end: 20130326
  5. HYDROCHLOROTHIAZIDE [Suspect]
     Indication: HYPERTENSION
     Dosage: 125 MG, DAILY
     Route: 048
     Dates: start: 20070128
  6. LISINOPRIL [Suspect]
     Indication: HYPERTENSION
     Dosage: 20 MG, DAILY
     Route: 048
     Dates: start: 20081021
  7. AMLODIPINE [Suspect]
     Indication: HYPERTENSION
     Dosage: 10 MG, DAILY
     Route: 048
     Dates: start: 20080303
  8. ZANTAC [Concomitant]
     Indication: GASTRIC ULCER
     Dosage: 150 MG, 2X/DAY
     Route: 048
     Dates: start: 20070128, end: 20080804

REACTIONS (1)
  - Dizziness [Recovered/Resolved]
